FAERS Safety Report 15784950 (Version 1)
Quarter: 2019Q1

REPORT INFORMATION
  Report Type: Report from Study
  Country: US (occurrence: US)
  Receive Date: 20190103
  Receipt Date: 20190103
  Transmission Date: 20190417
  Serious: Yes (Other)
  Sender: FDA-Public Use
  Company Number: US-AUROBINDO-AUR-APL-2018-063780

PATIENT
  Age: 52 Month
  Sex: Male

DRUGS (5)
  1. CARBOPLATIN INJECTION [Suspect]
     Active Substance: CARBOPLATIN
     Indication: CONGENITAL RETINOBLASTOMA
     Dosage: UNK, 7 CYCLE,OPHTHALMIC ARTERY CHEMOTHERAPY
     Route: 013
  2. MELPHALAN. [Suspect]
     Active Substance: MELPHALAN
     Indication: CONGENITAL RETINOBLASTOMA
     Dosage: UNK, 7 CYCLE, OPHTHALMIC ARTERY CHEMOTHERAPY
     Route: 013
  3. HEPARIN [Concomitant]
     Active Substance: HEPARIN SODIUM
     Indication: PROPHYLAXIS
     Dosage: UNK
     Route: 065
  4. NITROUS OXIDE. [Suspect]
     Active Substance: NITROUS OXIDE
     Indication: INDUCTION OF ANAESTHESIA
     Dosage: UNK,WITH A MAXIMUM END TIDAL NITROUS OXIDE (ET N2O) OF 60.2%
     Route: 055
  5. TOPOTECAN [Suspect]
     Active Substance: TOPOTECAN HYDROCHLORIDE
     Indication: CONGENITAL RETINOBLASTOMA
     Dosage: UNK, 7 CYCLE, OPHTHALMIC ARTERY CHEMOTHERAPY
     Route: 013

REACTIONS (5)
  - Choroidal infarction [Unknown]
  - Retinal pigment epitheliopathy [Unknown]
  - Toxicity to various agents [Unknown]
  - Arterial thrombosis [Unknown]
  - Ischaemia [Unknown]
